FAERS Safety Report 9371384 (Version 2)
Quarter: 2013Q3

REPORT INFORMATION
  Report Type: Spontaneous
  Country: US (occurrence: US)
  Receive Date: 20130627
  Receipt Date: 20130709
  Transmission Date: 20140515
  Serious: Yes (Disabling, Other)
  Sender: FDA-Public Use
  Company Number: US-JNJFOC-20130610724

PATIENT
  Sex: Female

DRUGS (1)
  1. LEVAQUIN [Suspect]
     Indication: PRODUCT USED FOR UNKNOWN INDICATION
     Route: 065

REACTIONS (11)
  - Toxicity to various agents [Unknown]
  - Disability [Unknown]
  - Skin cancer [Unknown]
  - Gastrointestinal disorder [Unknown]
  - Muscle atrophy [Unknown]
  - Food allergy [Unknown]
  - Impaired work ability [Unknown]
  - Eating disorder [Unknown]
  - Allergy to chemicals [Unknown]
  - Asthenia [Unknown]
  - Gait disturbance [Unknown]
